FAERS Safety Report 5324012-9 (Version None)
Quarter: 2007Q2

REPORT INFORMATION
  Report Type: 
  Country: None (occurrence: None)
  Receive Date: 20070514
  Receipt Date: 20070509
  Transmission Date: 20071010
  Serious: Yes (Hospitalization)
  Sender: FDA-Public Use
  Company Number: IN-BRISTOL-MYERS SQUIBB COMPANY-13773403

PATIENT
  Age: 39 Year
  Sex: Male

DRUGS (1)
  1. BARACLUDE [Suspect]
     Route: 048
     Dates: start: 20070419

REACTIONS (1)
  - HOSPITALISATION [None]
